FAERS Safety Report 20220644 (Version 1)
Quarter: 2021Q4

REPORT INFORMATION
  Report Type: Spontaneous
  Country: US (occurrence: US)
  Receive Date: 20211223
  Receipt Date: 20211223
  Transmission Date: 20220303
  Serious: Yes (Hospitalization)
  Sender: FDA-Public Use
  Company Number: US-JNJFOC-20211227104

PATIENT
  Age: 43 Year
  Sex: Female
  Weight: 65 kg

DRUGS (11)
  1. ACETAMINOPHEN [Suspect]
     Active Substance: ACETAMINOPHEN
     Indication: Pain management
     Dosage: ACETAMINOPHEN 10400 MG/DAY  FOR 24 MONTHS
     Route: 048
     Dates: end: 20031224
  2. KETOCONAZOLE [Suspect]
     Active Substance: KETOCONAZOLE
     Indication: Product used for unknown indication
     Dosage: 200 MG EVERY 3 DAYS FOR 14 DAYS
     Route: 065
     Dates: end: 20031224
  3. PROGESTERONE [Concomitant]
     Active Substance: PROGESTERONE
     Indication: Product used for unknown indication
     Dosage: UNKNOWN DOSE FOR 24 MONTHS
     Route: 061
     Dates: end: 20031206
  4. DOXEPIN [Concomitant]
     Active Substance: DOXEPIN
     Indication: Product used for unknown indication
     Dosage: 40 MG/DAY FOR 72 MONTHS
     Route: 065
     Dates: end: 20031210
  5. ELAVIL [Concomitant]
     Active Substance: AMITRIPTYLINE HYDROCHLORIDE
     Indication: Product used for unknown indication
     Dosage: 75 MG/DAY FOR 12 MONTHS
     Route: 065
     Dates: end: 20031110
  6. AMBIEN [Concomitant]
     Active Substance: ZOLPIDEM TARTRATE
     Indication: Product used for unknown indication
     Dosage: 10 MG/DAY FOR 14 DAYS
     Route: 065
     Dates: end: 20031224
  7. IBUPROFEN [Concomitant]
     Active Substance: IBUPROFEN
     Indication: Product used for unknown indication
     Dosage: 1600 MG/DAY FOR 24 MONTHS
     Route: 065
     Dates: end: 20031225
  8. MINERALS\VITAMINS [Concomitant]
     Active Substance: MINERALS\VITAMINS
     Indication: Product used for unknown indication
     Dosage: 1 TABLET FOR 72 MONTHS
     Route: 065
     Dates: end: 20031224
  9. OSCAL D [Concomitant]
     Active Substance: CALCIUM CARBONATE\CHOLECALCIFEROL
     Indication: Product used for unknown indication
     Dosage: 2 TABLETS/DAY FOR 14 DAYS
     Route: 065
     Dates: end: 20031225
  10. DOCONEXENT\ICOSAPENT [Concomitant]
     Active Substance: DOCONEXENT\ICOSAPENT
     Indication: Product used for unknown indication
     Dosage: EICOSAPENTAENOIC ACID 180MG/DOCOSAHEXAENOIC ACID 120 MG; 3 TABLETS FOR 14 DAYS
     Route: 065
     Dates: end: 20031225
  11. DIETARY SUPPLEMENT\HERBALS\MILK THISTLE [Concomitant]
     Active Substance: DIETARY SUPPLEMENT\HERBALS\MILK THISTLE
     Indication: Product used for unknown indication
     Dosage: 3 FOR 14 DAYS
     Route: 065
     Dates: end: 20031211

REACTIONS (4)
  - Acute hepatic failure [Recovered/Resolved]
  - Drug-induced liver injury [Recovered/Resolved]
  - Pleural effusion [Recovered/Resolved]
  - Accidental overdose [Recovered/Resolved]
